FAERS Safety Report 10254749 (Version 1)
Quarter: 2014Q2

REPORT INFORMATION
  Report Type: Spontaneous
  Country: DE (occurrence: DE)
  Receive Date: 20140624
  Receipt Date: 20140624
  Transmission Date: 20141212
  Serious: Yes (Life-Threatening, Hospitalization)
  Sender: FDA-Public Use
  Company Number: DE-SA-2014SA079290

PATIENT
  Sex: Male

DRUGS (6)
  1. GLIMEPIRIDE [Suspect]
     Indication: DIABETES MELLITUS
     Route: 048
     Dates: start: 20120918, end: 20121007
  2. METFORMIN [Concomitant]
     Indication: DIABETES MELLITUS
     Route: 065
     Dates: start: 20090603
  3. ENALAPRIL [Concomitant]
     Indication: HYPERTENSION
     Route: 065
     Dates: start: 2005, end: 20121007
  4. METOCLOPRAMIDE HYDROCHLORIDE [Concomitant]
  5. LEFAX [Concomitant]
     Indication: DYSPEPSIA
     Route: 065
     Dates: start: 2003
  6. SWEATOSAN [Concomitant]
     Indication: DYSPEPSIA
     Dosage: FROM: SUGAR COATED TABLET
     Route: 065
     Dates: start: 2003

REACTIONS (4)
  - Myocardial infarction [Recovering/Resolving]
  - Cardiac failure [Recovering/Resolving]
  - Coronary artery disease [Recovering/Resolving]
  - Peroneal nerve palsy [Recovering/Resolving]
